FAERS Safety Report 5618162-7 (Version None)
Quarter: 2008Q1

REPORT INFORMATION
  Report Type: 
  Country: None (occurrence: None)
  Receive Date: 20080207
  Receipt Date: 20071024
  Transmission Date: 20080703
  Serious: No
  Sender: FDA-Public Use
  Company Number: A0689560A

PATIENT
  Age: 60 Year
  Sex: Female

DRUGS (4)
  1. PAXIL [Suspect]
     Indication: DEPRESSION
     Dosage: 20MG PER DAY
     Route: 048
     Dates: start: 19980101
  2. PAXIL [Suspect]
     Dosage: 20MG PER DAY
     Route: 048
  3. ACIPHEX [Concomitant]
  4. ESTRACE [Concomitant]

REACTIONS (6)
  - CRYING [None]
  - EAR DISCOMFORT [None]
  - EYE PAIN [None]
  - HEADACHE [None]
  - HYPERTENSION [None]
  - WITHDRAWAL SYNDROME [None]
